FAERS Safety Report 7228309-7 (Version None)
Quarter: 2011Q1

REPORT INFORMATION
  Report Type: 
  Country: None (occurrence: None)
  Receive Date: 20110114
  Receipt Date: 20110111
  Transmission Date: 20110831
  Serious: Yes (Death, Other)
  Sender: FDA-Public Use
  Company Number: FR-B.I. PHARMACEUTICALS,INC./RIDGEFIELD-2010-FF-01062FF

PATIENT
  Sex: Male

DRUGS (10)
  1. MODOPAR [Concomitant]
     Dosage: 937.5 MG
     Route: 048
     Dates: start: 20091101
  2. FUROSEMIDE [Concomitant]
  3. LANZOR [Concomitant]
  4. SIFROL [Suspect]
     Dosage: 2.8 MG
     Route: 048
     Dates: start: 20080701, end: 20091103
  5. SIFROL [Suspect]
     Indication: PARKINSON'S DISEASE
     Route: 048
     Dates: start: 20051101, end: 20080701
  6. PREVISCAN [Concomitant]
  7. MODOPAR [Concomitant]
     Indication: PARKINSON'S DISEASE
     Dosage: 375 MG
     Route: 048
     Dates: end: 20091101
  8. COMTAN [Concomitant]
     Dates: start: 20091101
  9. MODOPAR LP [Concomitant]
     Indication: PARKINSON'S DISEASE
     Dosage: 250 MG
     Route: 048
  10. ISOPTIN [Concomitant]

REACTIONS (6)
  - PNEUMONIA ASPIRATION [None]
  - NEUROLEPTIC MALIGNANT SYNDROME [None]
  - SOMNOLENCE [None]
  - PYREXIA [None]
  - MUSCLE RIGIDITY [None]
  - DEATH [None]
